FAERS Safety Report 5538307-7 (Version None)
Quarter: 2007Q4

REPORT INFORMATION
  Report Type: 
  Country: None (occurrence: None)
  Receive Date: 20071205
  Receipt Date: 20071128
  Transmission Date: 20080405
  Serious: Yes (Other)
  Sender: FDA-Public Use
  Company Number: TPA2007A02420

PATIENT
  Age: 77 Year
  Sex: Male

DRUGS (1)
  1. ACTOS [Suspect]
     Dosage: PER ORAL
     Route: 048

REACTIONS (3)
  - CORONARY ARTERY BYPASS [None]
  - RETINAL DISORDER [None]
  - VASCULAR INJURY [None]
